FAERS Safety Report 11403088 (Version 1)
Quarter: 2015Q3

REPORT INFORMATION
  Report Type: Spontaneous
  Country: US (occurrence: US)
  Receive Date: 20150821
  Receipt Date: 20150821
  Transmission Date: 20151125
  Serious: No
  Sender: FDA-Public Use
  Company Number: US-ROCHE-1272705

PATIENT
  Sex: Female

DRUGS (4)
  1. PEGASYS [Suspect]
     Active Substance: PEGINTERFERON ALFA-2A
     Indication: CHRONIC HEPATITIS C
     Route: 058
     Dates: start: 20130807
  2. ZYRTEC-D [Concomitant]
     Active Substance: CETIRIZINE HYDROCHLORIDE\PSEUDOEPHEDRINE HYDROCHLORIDE
     Indication: HYPERSENSITIVITY
  3. TOPAMAX [Concomitant]
     Active Substance: TOPIRAMATE
     Indication: MIGRAINE
  4. RIBAVIRIN. [Suspect]
     Active Substance: RIBAVIRIN
     Indication: CHRONIC HEPATITIS C
     Dosage: 800 MG/DAY (DIVIDED DOSES)
     Route: 048
     Dates: start: 20130807

REACTIONS (15)
  - Headache [Unknown]
  - Hypersensitivity [Unknown]
  - Malaise [Unknown]
  - Screaming [Unknown]
  - Visual impairment [Not Recovered/Not Resolved]
  - Dizziness [Not Recovered/Not Resolved]
  - Muscle tightness [Not Recovered/Not Resolved]
  - Skin mass [Unknown]
  - Pyrexia [Unknown]
  - Sinusitis [Recovered/Resolved]
  - Ear discomfort [Unknown]
  - Paranasal sinus hypersecretion [Unknown]
  - Local swelling [Unknown]
  - Tinnitus [Not Recovered/Not Resolved]
  - Dizziness postural [Not Recovered/Not Resolved]
